FAERS Safety Report 25790361 (Version 1)
Quarter: 2025Q3

REPORT INFORMATION
  Report Type: Spontaneous
  Country: CN (occurrence: CN)
  Receive Date: 20250911
  Receipt Date: 20250911
  Transmission Date: 20251021
  Serious: Yes (Other)
  Sender: RANBAXY
  Company Number: CN-SUN PHARMACEUTICAL INDUSTRIES LTD-2025R1-524839

PATIENT
  Age: 77 Year
  Sex: Male
  Weight: 64 kg

DRUGS (4)
  1. CAPECITABINE [Suspect]
     Active Substance: CAPECITABINE
     Indication: Colorectal cancer
     Route: 048
     Dates: start: 20220917, end: 20221103
  2. CAPECITABINE [Suspect]
     Active Substance: CAPECITABINE
     Indication: Gastric cancer
  3. PACLITAXEL [Suspect]
     Active Substance: PACLITAXEL
     Indication: Colorectal cancer
     Route: 041
     Dates: start: 20220917, end: 20221103
  4. PACLITAXEL [Suspect]
     Active Substance: PACLITAXEL
     Indication: Gastric cancer

REACTIONS (2)
  - Drug ineffective [Unknown]
  - Disease progression [Unknown]
